FAERS Safety Report 12782692 (Version 9)
Quarter: 2016Q4

REPORT INFORMATION
  Report Type: Spontaneous
  Country: US (occurrence: US)
  Receive Date: 20160927
  Receipt Date: 20161102
  Transmission Date: 20170207
  Serious: Yes (Hospitalization, Other)
  Sender: FDA-Public Use
  Company Number: US-ACTELION-A-NJ2016-142789

PATIENT
  Age: 61 Year
  Sex: Female

DRUGS (4)
  1. ADCIRCA [Concomitant]
     Active Substance: TADALAFIL
  2. COUMADIN [Concomitant]
     Active Substance: WARFARIN SODIUM
  3. TRACLEER [Suspect]
     Active Substance: BOSENTAN
     Indication: PULMONARY ARTERIAL HYPERTENSION
     Route: 048
  4. VELETRI [Suspect]
     Active Substance: EPOPROSTENOL
     Indication: PULMONARY ARTERIAL HYPERTENSION
     Dosage: 39.83 NG/KG, PER MIN
     Route: 042
     Dates: start: 20140929

REACTIONS (19)
  - Device breakage [Unknown]
  - Catheter site pain [Unknown]
  - Oedema [Unknown]
  - Haemorrhage [Unknown]
  - Catheter site inflammation [Unknown]
  - Complication associated with device [Unknown]
  - Pulmonary hypertension [Unknown]
  - Device leakage [Unknown]
  - Catheter site erythema [Unknown]
  - Malaise [Unknown]
  - Feeling abnormal [Unknown]
  - Catheter placement [Unknown]
  - Catheter site swelling [Unknown]
  - Catheter site nodule [Unknown]
  - Dyspnoea [Unknown]
  - Infection [Unknown]
  - Device dislocation [Unknown]
  - Pneumonia [Unknown]
  - Weight increased [Unknown]
